FAERS Safety Report 10985059 (Version 1)
Quarter: 2015Q2

REPORT INFORMATION
  Report Type: Spontaneous
  Country: CN (occurrence: CN)
  Receive Date: 20150403
  Receipt Date: 20150403
  Transmission Date: 20150821
  Serious: Yes (Other)
  Sender: FDA-Public Use
  Company Number: CN-JNJFOC-20150316963

PATIENT
  Age: 46 Year
  Sex: Male

DRUGS (2)
  1. DAKTARIN [Suspect]
     Active Substance: MICONAZOLE NITRATE
     Route: 003
  2. DAKTARIN [Suspect]
     Active Substance: MICONAZOLE NITRATE
     Indication: DERMATOPHYTOSIS
     Route: 003
     Dates: start: 20150315, end: 20150319

REACTIONS (3)
  - Infection [Not Recovered/Not Resolved]
  - Peripheral swelling [Not Recovered/Not Resolved]
  - Erythema [Unknown]

NARRATIVE: CASE EVENT DATE: 20150316
